FAERS Safety Report 9144408 (Version 1)
Quarter: 2013Q1

REPORT INFORMATION
  Report Type: Report from Study
  Country: US (occurrence: US)
  Receive Date: 20130306
  Receipt Date: 20130306
  Transmission Date: 20140127
  Serious: Yes (Other)
  Sender: FDA-Public Use
  Company Number: US-ABBOTT-13P-163-1055211-00

PATIENT
  Age: 47 Year
  Sex: Male

DRUGS (17)
  1. DETROL [Concomitant]
     Indication: NEUROGENIC BLADDER
     Dosage: IN THE MORNING
  2. DETROL [Concomitant]
     Dosage: IN THE EVENING
  3. PRILOSEC [Concomitant]
     Indication: GASTROOESOPHAGEAL REFLUX DISEASE
     Dosage: EVERY MORNING
  4. LIBRAX [Concomitant]
     Indication: GASTRIC DISORDER
     Dosage: 5/2.5 MG 1 IN THE MORNING
  5. ZYRTEC [Concomitant]
     Indication: HYPERSENSITIVITY
     Dosage: IN THE MORNING
  6. TRAMADOL ER [Concomitant]
     Indication: HEADACHE
     Dosage: 200 MG 2 IN THE MORNING
  7. C-PAP [Concomitant]
     Indication: SLEEP APNOEA SYNDROME
  8. DILTIAZEM [Concomitant]
     Indication: CARDIAC DISORDER
     Dosage: 180 MG 1 TABLET IN THE EVENING
  9. EFFIENT [Concomitant]
     Indication: CARDIAC DISORDER
     Dosage: 10 MG 1 IN THE EVENING
  10. ASPIRIN [Concomitant]
     Indication: PRODUCT USED FOR UNKNOWN INDICATION
     Dosage: 1/2 TABLET 325 MG IN THE EVENING
  11. LIPITOR [Concomitant]
     Indication: CARDIAC DISORDER
     Dosage: 40 MG 1 TABLET IN THE EVENING
  12. HUMIRA [Suspect]
     Indication: CROHN^S DISEASE
  13. CAMBIA [Concomitant]
     Indication: HEADACHE
     Dosage: 50 MG FOR 1 TO 2 TABLETS
  14. GABAPENTIN [Concomitant]
     Indication: CONVULSION
     Dosage: IN THE MORNING
  15. GABAPENTIN [Concomitant]
     Dosage: UP TO FOUR IN THE EVENING
  16. MELATONIN [Concomitant]
     Indication: INSOMNIA
     Dosage: 5 MG 1 TO 3 IN THE EVENING
  17. LAMICTAL [Concomitant]
     Indication: HEADACHE
     Dosage: 100 MG 2 TO 3 IN THE EVENING

REACTIONS (2)
  - Coronary artery occlusion [Unknown]
  - Chest pain [Unknown]
